FAERS Safety Report 6821453-5 (Version None)
Quarter: 2010Q3

REPORT INFORMATION
  Report Type: 
  Country: None (occurrence: None)
  Receive Date: 20100707
  Receipt Date: 20080820
  Transmission Date: 20110219
  Serious: No
  Sender: FDA-Public Use
  Company Number: US-PFIZER INC-2008069853

PATIENT
  Sex: Female
  Weight: 60 kg

DRUGS (6)
  1. ZOLOFT [Suspect]
     Indication: ANXIETY
     Dates: start: 20010101
  2. ZOLOFT [Suspect]
     Indication: DEPRESSION
  3. ADVIL LIQUI-GELS [Concomitant]
  4. MOTRIN [Concomitant]
  5. ALEVE (CAPLET) [Concomitant]
  6. DRUG, UNSPECIFIED [Concomitant]

REACTIONS (1)
  - DRUG SCREEN FALSE POSITIVE [None]
